FAERS Safety Report 14672337 (Version 1)
Quarter: 2018Q1

REPORT INFORMATION
  Report Type: Spontaneous
  Country: US (occurrence: US)
  Receive Date: 20180322
  Receipt Date: 20180322
  Transmission Date: 20180509
  Serious: Yes (Hospitalization)
  Sender: FDA-Public Use
  Company Number: None

PATIENT
  Age: 16 Year
  Sex: Male
  Weight: 83 kg

DRUGS (8)
  1. DEXAMETHASONE. [Suspect]
     Active Substance: DEXAMETHASONE
     Dates: end: 20180101
  2. ONCASPAR [Suspect]
     Active Substance: PEGASPARGASE
     Dates: end: 20180124
  3. METHOTREXATE. [Suspect]
     Active Substance: METHOTREXATE
     Dates: end: 20180117
  4. THIOGUANINE (6-TG) [Suspect]
     Active Substance: THIOGUANINE ANHYDROUS
     Dates: end: 20180122
  5. CYTARABINE. [Suspect]
     Active Substance: CYTARABINE
     Dates: end: 20180120
  6. CYCLOPHOSPHAMIDE. [Suspect]
     Active Substance: CYCLOPHOSPHAMIDE
     Dates: end: 20180108
  7. DOXORUBICIN HYDROCHLORIDE. [Suspect]
     Active Substance: DOXORUBICIN HYDROCHLORIDE
     Dates: end: 20171226
  8. VINCRISTINE SULFATE. [Concomitant]
     Active Substance: VINCRISTINE SULFATE
     Dates: end: 20180124

REACTIONS (15)
  - Decreased appetite [None]
  - Febrile neutropenia [None]
  - Tachycardia [None]
  - Nasal flaring [None]
  - Vomiting [None]
  - Blood pressure diastolic decreased [None]
  - Stomatitis [None]
  - Blood culture positive [None]
  - Nausea [None]
  - Sepsis [None]
  - Infection [None]
  - Anaemia [None]
  - Dehydration [None]
  - Oral candidiasis [None]
  - Neisseria test positive [None]

NARRATIVE: CASE EVENT DATE: 20180129
